FAERS Safety Report 12965715 (Version 2)
Quarter: 2017Q1

REPORT INFORMATION
  Report Type: Spontaneous
  Country: DE (occurrence: DE)
  Receive Date: 20161122
  Receipt Date: 20170104
  Transmission Date: 20170428
  Serious: Yes (Hospitalization)
  Sender: FDA-Public Use
  Company Number: DE-TAKEDA-2016TUS020806

PATIENT
  Age: 20 Year
  Sex: Male
  Weight: 50 kg

DRUGS (1)
  1. ENTYVIO [Suspect]
     Active Substance: VEDOLIZUMAB
     Indication: CROHN^S DISEASE
     Dosage: UNK
     Route: 065
     Dates: start: 201603, end: 2016

REACTIONS (5)
  - Speech disorder [Recovered/Resolved]
  - Disorientation [Recovered/Resolved]
  - Body temperature increased [Recovered/Resolved]
  - Headache [Recovered/Resolved]
  - Hemiparesis [Recovered/Resolved]

NARRATIVE: CASE EVENT DATE: 201608
